FAERS Safety Report 5382636-7 (Version None)
Quarter: 2007Q3

REPORT INFORMATION
  Report Type: 
  Country: None (occurrence: None)
  Receive Date: 20070702
  Receipt Date: 20070301
  Transmission Date: 20080115
  Serious: No
  Sender: FDA-Public Use
  Company Number: 2007PV030943

PATIENT
  Age: 58 Year
  Sex: Female
  Weight: 107.9561 kg

DRUGS (4)
  1. SYMLIN [Suspect]
     Indication: TYPE 2 DIABETES MELLITUS
     Dosage: 120 MCG;BID;SC
     Route: 058
  2. SYMLIN [Suspect]
     Dosage: 60 MCG;BID;SC : 60 MCG;QD;SC
     Route: 058
     Dates: start: 20060101
  3. INSULIN [Concomitant]
  4. NEXIUM [Concomitant]

REACTIONS (3)
  - DYSPEPSIA [None]
  - NAUSEA [None]
  - WEIGHT DECREASED [None]
